FAERS Safety Report 9269471 (Version 2)
Quarter: 2013Q2

REPORT INFORMATION
  Report Type: Spontaneous
  Country: US (occurrence: US)
  Receive Date: 20130503
  Receipt Date: 20130612
  Transmission Date: 20140414
  Serious: Yes (Other)
  Sender: FDA-Public Use
  Company Number: US-PFIZER INC-2013136265

PATIENT
  Sex: Male

DRUGS (1)
  1. LYRICA [Suspect]
     Dosage: UNK

REACTIONS (5)
  - Cerebrovascular accident [Unknown]
  - Back disorder [Unknown]
  - Peripheral arterial occlusive disease [Unknown]
  - Cardiac disorder [Unknown]
  - Amnesia [Unknown]
